FAERS Safety Report 8788469 (Version 1)
Quarter: 2012Q4

REPORT INFORMATION
  Report Type: Report from Study
  Country: US (occurrence: US)
  Receive Date: 20120914
  Receipt Date: 20120914
  Transmission Date: 20130627
  Serious: No
  Sender: FDA-Public Use
  Company Number: US-VERTEX PHARMACEUTICAL INC.-AE-2012-011454

PATIENT
  Age: 48 Year
  Sex: Female
  Weight: 74.55 kg

DRUGS (9)
  1. INCIVEK [Suspect]
     Indication: HEPATITIS C
     Route: 048
  2. PROTONIX [Concomitant]
  3. XANAX [Concomitant]
  4. PEGASYS [Concomitant]
  5. RIBAVIRIN [Concomitant]
  6. MULTIVITAMIN CAPSULE [Concomitant]
  7. VITAMIN C [Concomitant]
  8. B COMPLEX [Concomitant]
  9. VITAMIN D3 [Concomitant]

REACTIONS (6)
  - Headache [Unknown]
  - Fatigue [Unknown]
  - Rash [Unknown]
  - Diarrhoea [Unknown]
  - Anal fissure [Unknown]
  - Pruritus [Unknown]
